FAERS Safety Report 23465099 (Version 1)
Quarter: 2024Q1

REPORT INFORMATION
  Report Type: Spontaneous
  Country: ES (occurrence: None)
  Receive Date: 20240201
  Receipt Date: 20240201
  Transmission Date: 20240410
  Serious: Yes (Life-Threatening, Hospitalization, Other)
  Sender: FDA-Public Use
  Company Number: 2024A025655

PATIENT
  Age: 11 Month
  Sex: Male
  Weight: 6 kg

DRUGS (1)
  1. BEYFORTUS [Suspect]
     Active Substance: NIRSEVIMAB-ALIP
     Indication: VACTERL syndrome
     Dosage: 100 MG, TOTAL100.0MG ONCE/SINGLE ADMINISTRATION
     Route: 030
     Dates: start: 20231122, end: 20231122

REACTIONS (3)
  - Respiratory syncytial virus bronchiolitis [Recovered/Resolved]
  - Respiratory failure [Recovered/Resolved]
  - Drug ineffective [Unknown]
